FAERS Safety Report 13821734 (Version 3)
Quarter: 2017Q3

REPORT INFORMATION
  Report Type: Spontaneous
  Country: IT (occurrence: IT)
  Receive Date: 20170801
  Receipt Date: 20170912
  Transmission Date: 20171127
  Serious: Yes (Other)
  Sender: FDA-Public Use
  Company Number: IT-TEVA-791466ACC

PATIENT
  Age: 77 Year
  Sex: Male

DRUGS (1)
  1. CLOPIDOGREL [Suspect]
     Active Substance: CLOPIDOGREL BISULFATE
     Indication: CORONARY ARTERY DISEASE
     Route: 048

REACTIONS (2)
  - Laryngospasm [Unknown]
  - Hypertrophy of tongue papillae [Unknown]

NARRATIVE: CASE EVENT DATE: 20170613
